FAERS Safety Report 7534060-6 (Version None)
Quarter: 2011Q2

REPORT INFORMATION
  Report Type: 
  Country: None (occurrence: None)
  Receive Date: 20110608
  Receipt Date: 20061006
  Transmission Date: 20111010
  Serious: Yes (Death, Hospitalization)
  Sender: FDA-Public Use
  Company Number: PHEH2006US10600

PATIENT
  Sex: Male

DRUGS (8)
  1. DIGOXIN [Concomitant]
     Dosage: 0.125 MG, QD
     Route: 048
  2. EXJADE [Suspect]
     Indication: IRON OVERLOAD
     Dosage: 250 MG, QD
     Route: 048
     Dates: start: 20060725, end: 20060803
  3. PREDNISONE [Concomitant]
     Dosage: 10 MG, QD
     Route: 048
  4. TOPROL-XL [Concomitant]
     Dosage: 50 MG, QD
     Route: 048
  5. MULTI-VITAMINS [Concomitant]
     Dosage: UNK
  6. TRAZODONE HCL [Concomitant]
     Dosage: 50 MG, QD
     Route: 048
  7. SYNTHROID [Concomitant]
     Dosage: 50 UG, QD
  8. PERCOCET [Concomitant]
     Dosage: UNK, PRN

REACTIONS (6)
  - DYSPNOEA [None]
  - PNEUMONIA [None]
  - COAGULOPATHY [None]
  - RESPIRATORY FAILURE [None]
  - MULTI-ORGAN FAILURE [None]
  - VASCULITIS [None]
